FAERS Safety Report 5406922-7 (Version None)
Quarter: 2007Q3

REPORT INFORMATION
  Report Type: 
  Country: None (occurrence: None)
  Receive Date: 20070807
  Receipt Date: 20070801
  Transmission Date: 20080115
  Serious: Yes (Hospitalization, Other)
  Sender: FDA-Public Use
  Company Number: GB-BRISTOL-MYERS SQUIBB COMPANY-13865274

PATIENT
  Age: 12 Year
  Sex: Male
  Weight: 42 kg

DRUGS (2)
  1. DIDANOSINE [Suspect]
     Indication: HIV TEST POSITIVE
  2. TENOFOVIR [Suspect]
     Indication: HIV TEST POSITIVE

REACTIONS (5)
  - ABDOMINAL PAIN [None]
  - BLOOD CREATININE INCREASED [None]
  - CD4 LYMPHOCYTES DECREASED [None]
  - RENAL TUBULAR DISORDER [None]
  - VOMITING [None]
